FAERS Safety Report 16192643 (Version 2)
Quarter: 2019Q2

REPORT INFORMATION
  Report Type: Spontaneous
  Country: US (occurrence: US)
  Receive Date: 20190412
  Receipt Date: 20190515
  Transmission Date: 20190711
  Serious: No
  Sender: FDA-Public Use
  Company Number: US-SA-2019SA101621

PATIENT
  Age: 59 Year
  Sex: Male

DRUGS (1)
  1. ADMELOG [Suspect]
     Active Substance: INSULIN LISPRO
     Indication: TYPE 2 DIABETES MELLITUS
     Dosage: 20-25 U, TID
     Route: 065
     Dates: start: 201901

REACTIONS (4)
  - Product storage error [Unknown]
  - Device operational issue [Unknown]
  - Injection site pain [Unknown]
  - Incorrect dose administered by device [Unknown]
